FAERS Safety Report 11920022 (Version 1)
Quarter: 2016Q1

REPORT INFORMATION
  Report Type: Spontaneous
  Country: IN (occurrence: IN)
  Receive Date: 20160115
  Receipt Date: 20160115
  Transmission Date: 20160526
  Serious: Yes (Hospitalization, Other)
  Sender: FDA-Public Use
  Company Number: IN-PFIZER INC-2015474124

PATIENT
  Age: 70 Year
  Sex: Male

DRUGS (1)
  1. SUTENT [Suspect]
     Active Substance: SUNITINIB MALATE
     Indication: METASTATIC RENAL CELL CARCINOMA
     Dosage: 50 MG, 1X/DAY
     Route: 048
     Dates: start: 20151201, end: 20151218

REACTIONS (4)
  - Depressed level of consciousness [Not Recovered/Not Resolved]
  - Platelet count decreased [Recovered/Resolved]
  - Disease progression [Not Recovered/Not Resolved]
  - Metastatic renal cell carcinoma [Not Recovered/Not Resolved]

NARRATIVE: CASE EVENT DATE: 201512
